FAERS Safety Report 10016387 (Version 2)
Quarter: 2014Q2

REPORT INFORMATION
  Report Type: Spontaneous
  Country: US (occurrence: US)
  Receive Date: 20140317
  Receipt Date: 20140402
  Transmission Date: 20141212
  Serious: Yes (Other)
  Sender: FDA-Public Use
  Company Number: US-PFIZER INC-2014076815

PATIENT
  Sex: Female

DRUGS (1)
  1. HYDROCORTISONE [Suspect]
     Dosage: UNK

REACTIONS (4)
  - Drug dependence [Unknown]
  - Hyperpituitarism [Unknown]
  - Drug administration error [Unknown]
  - Hypopituitarism [Unknown]
